FAERS Safety Report 17798373 (Version 1)
Quarter: 2020Q2

REPORT INFORMATION
  Report Type: Report from Study
  Country: ES (occurrence: ES)
  Receive Date: 20200518
  Receipt Date: 20200518
  Transmission Date: 20200714
  Serious: Yes (Death)
  Sender: FDA-Public Use
  Company Number: ES-KYOWAKIRIN-2020BKK007877

PATIENT

DRUGS (1)
  1. MOGAMULIZUMAB [Suspect]
     Active Substance: MOGAMULIZUMAB
     Indication: CUTANEOUS T-CELL LYMPHOMA
     Dosage: 1 DF
     Route: 042
     Dates: start: 20200429, end: 20200429

REACTIONS (3)
  - Hepatic failure [Fatal]
  - Infusion related reaction [Unknown]
  - Lymphoma [Fatal]

NARRATIVE: CASE EVENT DATE: 20200429
